FAERS Safety Report 19088489 (Version 3)
Quarter: 2021Q2

REPORT INFORMATION
  Report Type: Report from Study
  Country: US (occurrence: US)
  Receive Date: 20210402
  Receipt Date: 20210430
  Transmission Date: 20210717
  Serious: No
  Sender: FDA-Public Use
  Company Number: US-AMGEN-USASL2021044617

PATIENT
  Age: 86 Year
  Sex: Female

DRUGS (1)
  1. NEULASTA [Suspect]
     Active Substance: PEGFILGRASTIM
     Indication: NEUTROPHIL COUNT DECREASED
     Dosage: UNK UNK, CYCLICAL (ONCE EVERY 21 DAYS)
     Route: 065

REACTIONS (1)
  - Device malfunction [Unknown]
